FAERS Safety Report 11475152 (Version 4)
Quarter: 2016Q4

REPORT INFORMATION
  Report Type: Spontaneous
  Country: US (occurrence: US)
  Receive Date: 20150908
  Receipt Date: 20161019
  Transmission Date: 20170206
  Serious: No
  Sender: FDA-Public Use
  Company Number: ALCN2015US005539

PATIENT
  Sex: Male
  Weight: 104.31 kg

DRUGS (2)
  1. SYSTANE BALANCE [Suspect]
     Active Substance: PROPYLENE GLYCOL
     Indication: EYE PRURITUS
     Dosage: 1 GTT, UNK
     Route: 047
  2. VIGAMOX [Suspect]
     Active Substance: MOXIFLOXACIN HYDROCHLORIDE
     Indication: SURGERY
     Dosage: 4 GTT, QD
     Route: 047
     Dates: end: 20150926

REACTIONS (4)
  - Eye irritation [Recovering/Resolving]
  - Drug ineffective [Recovering/Resolving]
  - Eye pruritus [Recovering/Resolving]
  - Condition aggravated [Recovering/Resolving]
